FAERS Safety Report 17435488 (Version 1)
Quarter: 2020Q1

REPORT INFORMATION
  Report Type: Spontaneous
  Country: US (occurrence: US)
  Receive Date: 20200219
  Receipt Date: 20200219
  Transmission Date: 20200409
  Serious: No
  Sender: FDA-Public Use
  Company Number: US-BRISTOL-MYERS SQUIBB COMPANY-BMS-2020-014356

PATIENT
  Age: 35 Year
  Sex: Female
  Weight: 54 kg

DRUGS (1)
  1. OPDIVO [Suspect]
     Active Substance: NIVOLUMAB
     Indication: BREAST CANCER
     Dosage: UNK
     Route: 042
     Dates: start: 201909, end: 201912

REACTIONS (2)
  - Intentional product use issue [Unknown]
  - Gastric disorder [Unknown]

NARRATIVE: CASE EVENT DATE: 202001
